FAERS Safety Report 9898223 (Version 3)
Quarter: 2015Q3

REPORT INFORMATION
  Report Type: Spontaneous
  Country: US (occurrence: US)
  Receive Date: 20140214
  Receipt Date: 20150810
  Transmission Date: 20151125
  Serious: No
  Sender: FDA-Public Use
  Company Number: US-GILEAD-2011-0041575

PATIENT
  Age: 65 Year
  Sex: Female
  Weight: 58.06 kg

DRUGS (2)
  1. REVATIO [Concomitant]
     Active Substance: SILDENAFIL CITRATE
  2. LETAIRIS [Suspect]
     Active Substance: AMBRISENTAN
     Indication: PULMONARY HYPERTENSION
     Route: 048

REACTIONS (5)
  - Pruritus [Unknown]
  - Oedema [Unknown]
  - Palpitations [Unknown]
  - Skin discolouration [Unknown]
  - Dyspnoea [Unknown]
